FAERS Safety Report 21914956 (Version 1)
Quarter: 2023Q1

REPORT INFORMATION
  Report Type: Spontaneous
  Country: US (occurrence: US)
  Receive Date: 20230126
  Receipt Date: 20230126
  Transmission Date: 20230418
  Serious: No
  Sender: FDA-Public Use
  Company Number: US-CATALYST PHARMACEUTICALS, INC-2022CAT00359

PATIENT
  Sex: Female
  Weight: 62.585 kg

DRUGS (7)
  1. FIRDAPSE [Suspect]
     Active Substance: AMIFAMPRIDINE PHOSPHATE
     Indication: Myasthenic syndrome
     Dosage: 15 MG, 3X/DAY
     Route: 048
     Dates: start: 20200513
  2. FIRDAPSE [Suspect]
     Active Substance: AMIFAMPRIDINE PHOSPHATE
     Dosage: 20 MG, 3X/DAY
     Route: 048
  3. FISH OIL [Concomitant]
     Active Substance: FISH OIL
  4. ZETIA [Concomitant]
     Active Substance: EZETIMIBE
  5. PANTOPRAZOLE [Concomitant]
     Active Substance: PANTOPRAZOLE
  6. FAMOTIDINE [Concomitant]
     Active Substance: FAMOTIDINE
  7. MELOXICAM [Concomitant]
     Active Substance: MELOXICAM
     Dosage: UNK, 5 DAYS A WEEK

REACTIONS (4)
  - Peripheral swelling [Not Recovered/Not Resolved]
  - Mastication disorder [Recovered/Resolved]
  - Drug ineffective [Unknown]
  - Myasthenic syndrome [Unknown]
